FAERS Safety Report 20535223 (Version 1)
Quarter: 2022Q1

REPORT INFORMATION
  Report Type: Spontaneous
  Country: NL (occurrence: NL)
  Receive Date: 20220302
  Receipt Date: 20220302
  Transmission Date: 20220423
  Serious: Yes (Other)
  Sender: FDA-Public Use
  Company Number: None

PATIENT
  Age: 73 Year
  Sex: Female

DRUGS (3)
  1. SPIRONOLACTONE [Suspect]
     Active Substance: SPIRONOLACTONE
     Indication: Diuretic therapy
     Dosage: 12.5 GRAM DAILY; WITH BREAKFAST; SPIRONOLACTONE TABLET 12.5MG / BRAND NAME NOT SPECIFIED
     Dates: start: 20220117, end: 20220121
  2. PHENPROCOUMON [Concomitant]
     Active Substance: PHENPROCOUMON
     Dosage: ACCORDING TO TD; 1 DF; THERAPY START AND END DATE: ASKU; FENPROCOUMON TABLET 3MG / BRAND NAME NOT SP
  3. VERAPAMIL [Concomitant]
     Active Substance: VERAPAMIL HYDROCHLORIDE
     Dosage: THERAPY END DATE: ASKU; VERAPAMIL TABLET MGA 240MG / BRAND NAME NOT SPECIFIED
     Dates: start: 2008

REACTIONS (4)
  - Transient ischaemic attack [Recovered/Resolved]
  - Fatigue [Not Recovered/Not Resolved]
  - Tachycardia [Recovered/Resolved]
  - Hypotension [Recovered/Resolved]

NARRATIVE: CASE EVENT DATE: 20220121
